FAERS Safety Report 8758224 (Version 2)
Quarter: 2012Q4

REPORT INFORMATION
  Report Type: Report from Study
  Country: US (occurrence: US)
  Receive Date: 20120829
  Receipt Date: 20120829
  Transmission Date: 20130627
  Serious: Yes (Life-Threatening, Hospitalization, Disabling)
  Sender: FDA-Public Use
  Company Number: US-ASTELLAS-2012US004580

PATIENT
  Age: 33 Year
  Sex: Male
  Weight: 93 kg

DRUGS (38)
  1. UNSPECIFIED INGREDIENT [Suspect]
     Indication: ACUTE MYELOID LEUKAEMIA
     Dosage: 60 mg, UID/QD
     Route: 048
     Dates: start: 20120402, end: 20120408
  2. UNSPECIFIED INGREDIENT [Suspect]
     Dosage: 60 mg, UID/QD
     Route: 048
     Dates: start: 20120417, end: 20120423
  3. DAUNORUBICIN [Suspect]
     Indication: ACUTE MYELOID LEUKAEMIA
     Dosage: 120 mg, UID/QD
     Route: 042
     Dates: start: 20120330, end: 20120401
  4. DAUNORUBICIN [Suspect]
     Dosage: 125 mg, UID/QD
     Route: 042
     Dates: start: 20120414, end: 20120416
  5. CYTARABINE [Suspect]
     Indication: ACUTE MYELOID LEUKAEMIA
     Dosage: 414 mg, UID/QD
     Route: 042
     Dates: start: 20120330, end: 20120405
  6. CYTARABINE [Suspect]
     Dosage: 414 mg, Continuous
     Route: 041
     Dates: start: 20120414, end: 20120420
  7. AMBISOME [Suspect]
     Indication: ANTIFUNGAL PROPHYLAXIS
     Dosage: 450 mg, UID/QD
     Route: 042
     Dates: start: 20120506, end: 20120507
  8. CEFEPIME [Suspect]
     Indication: INFECTION
     Dosage: 6 g, Q8 hours
     Route: 042
     Dates: start: 20120329, end: 20120410
  9. CEFEPIME [Suspect]
     Dosage: UNK
     Route: 042
     Dates: start: 20120602, end: 20120605
  10. CASPOFUNGIN [Suspect]
     Indication: INFECTION
     Dosage: 70 mg, Total Dose
     Route: 042
     Dates: start: 20120408, end: 20120408
  11. CASPOFUNGIN [Suspect]
     Dosage: 50 mg, UID/QD
     Route: 042
     Dates: start: 20120409, end: 20120506
  12. CASPOFUNGIN [Suspect]
     Dosage: UNK
     Route: 042
     Dates: start: 20120520, end: 20120522
  13. VANCOMYCIN [Suspect]
     Indication: PRODUCT USED FOR UNKNOWN INDICATION
     Dosage: 1750 mg, Unknown/D
     Route: 042
     Dates: start: 20120416, end: 20120502
  14. VANCOMYCIN [Suspect]
     Dosage: 3500 mg, Unknown/D
     Route: 042
     Dates: start: 20120503, end: 20120508
  15. AZTREONAM [Suspect]
     Indication: BACTERIAL INFECTION
     Dosage: 2 g, Q8 hours
     Route: 042
     Dates: start: 20120409, end: 20120410
  16. AZTREONAM [Suspect]
     Dosage: 2 g, Q8 hours
     Route: 042
     Dates: start: 20120506, end: 20120507
  17. PENICILLIN G [Suspect]
     Indication: INFECTION
     Dosage: 24000000 U, q 24 hrs
     Route: 042
     Dates: start: 20120504, end: 20120509
  18. VORICONAZOLE [Suspect]
     Indication: PRODUCT USED FOR UNKNOWN INDICATION
     Dosage: 1044 mg, Q12 hours
     Route: 050
     Dates: start: 20120508, end: 20120508
  19. VORICONAZOLE [Suspect]
     Dosage: 400 mg, Unknown/D
     Route: 048
  20. IMIPENEM [Suspect]
     Indication: INFECTION
     Dosage: 1000 mg, Q8 hours
     Route: 042
     Dates: start: 20120507, end: 20120528
  21. IBUPROFEN [Concomitant]
     Indication: PAIN
     Dosage: 800 mg, prn
     Route: 048
     Dates: start: 20120328, end: 20120329
  22. PERCOCET [Concomitant]
     Indication: DISCOMFORT
     Dosage: 10/325 mg q 8 hrs prn
     Route: 048
     Dates: start: 20120328, end: 20120329
  23. CELEXA [Concomitant]
     Indication: ANXIETY
     Dosage: 20 mg, UID/QD
     Route: 048
     Dates: start: 20110930, end: 20120330
  24. SEROQUEL [Concomitant]
     Indication: BIPOLAR DISORDER
     Dosage: 300 mg, QHS
     Route: 048
     Dates: start: 20110929, end: 20120330
  25. XANAX [Concomitant]
     Indication: ANXIETY
     Dosage: 0.5 mg, tid prn
     Route: 048
     Dates: start: 20120328
  26. ZYLOPRIM [Concomitant]
     Indication: BLOOD URIC ACID ABNORMAL
     Dosage: 200 mg, UID/QD
     Route: 048
     Dates: start: 20120328, end: 20120329
  27. LORAZEPAM [Concomitant]
     Indication: ANXIETY
     Dosage: 1 mg, q 8 hrs prn
     Route: 048
     Dates: start: 20120328, end: 20120329
  28. ACETAMINOPHEN [Concomitant]
     Indication: PYREXIA
     Dosage: 1000 mg, prn
     Route: 048
     Dates: start: 20120328, end: 20120329
  29. HYDROXYZINE PAMOATE [Concomitant]
     Indication: ANXIETY
     Dosage: 25 mg, prn
     Route: 048
     Dates: start: 20120328, end: 20120329
  30. HYDROXYZINE PAMOATE [Concomitant]
     Dosage: 50 mg, prn
     Route: 048
     Dates: start: 20120328, end: 20120329
  31. ONDANSETRON [Concomitant]
     Indication: NAUSEA
     Dosage: 4 mg, prn
     Route: 042
     Dates: start: 20120328, end: 20120329
  32. ONDANSETRON [Concomitant]
     Indication: VOMITING
  33. ALLOPURINOL [Concomitant]
     Indication: HYPERURICAEMIA
     Dosage: 300 mg, bid
     Route: 048
     Dates: start: 20120329
  34. CALCIUM CARBONATE [Concomitant]
     Indication: CALCIUM DEFICIENCY
     Dosage: 500 mg, tid
     Route: 048
     Dates: start: 20120403, end: 20120407
  35. CALCIUM CARBONATE [Concomitant]
     Dosage: 1000 mg, tid
     Route: 048
     Dates: start: 20120407
  36. CALCIUM GLUCONATE [Concomitant]
     Indication: CALCIUM DEFICIENCY
     Dosage: 2 g, Total Dose
     Route: 042
     Dates: start: 20120331, end: 20120331
  37. CALCIUM GLUCONATE [Concomitant]
     Dosage: 1 g, Total Dose
     Route: 042
     Dates: start: 20120407, end: 20120407
  38. NYSTATIN [Concomitant]
     Indication: STOMATITIS
     Dosage: 30 ml, qid
     Route: 048
     Dates: start: 20120329

REACTIONS (3)
  - Acute respiratory distress syndrome [Recovered/Resolved]
  - Renal failure acute [Recovered/Resolved]
  - Device related infection [Recovered/Resolved]
